FAERS Safety Report 10375545 (Version 1)
Quarter: 2014Q3

REPORT INFORMATION
  Report Type: Spontaneous
  Country: US (occurrence: None)
  Receive Date: 20140804
  Receipt Date: 20140804
  Transmission Date: 20150326
  Serious: Yes (Life-Threatening, Hospitalization)
  Sender: FDA-Public Use
  Company Number: 1713747-2014-99904

PATIENT
  Age: 70 Year
  Sex: Female
  Weight: 75 kg

DRUGS (16)
  1. OXYCODONE [Concomitant]
     Active Substance: OXYCODONE
  2. GRANUFLO [Concomitant]
     Active Substance: ACETIC ACID\SODIUM ACETATE
  3. OPTIFLUX DIALYZER [Concomitant]
  4. SYNTHROID [Concomitant]
     Active Substance: LEVOTHYROXINE SODIUM
  5. DIGOXIN. [Concomitant]
     Active Substance: DIGOXIN
  6. METOPROLOL [Concomitant]
     Active Substance: METOPROLOL
  7. AMIODARONE [Concomitant]
     Active Substance: AMIODARONE
  8. ASA [Concomitant]
     Active Substance: ASPIRIN
  9. PREVACID [Concomitant]
     Active Substance: LANSOPRAZOLE
  10. 2008K HEMODIALYSIS MACHINE [Concomitant]
  11. ATARAX. HUMULIN [Concomitant]
  12. 0.9% SODIUM CHLORIDE INJECTION, USP IN MINI-BAG PLUS CONTAINER [Suspect]
     Active Substance: SODIUM CHLORIDE
     Indication: HAEMODIALYSIS
  13. NATURALYTE [Concomitant]
     Active Substance: ACETIC ACID\SODIUM ACETATE
  14. COMBISET BLOODLINE [Concomitant]
  15. COUMADIN [Concomitant]
     Active Substance: WARFARIN SODIUM
  16. LEVOTHYROXINE [Concomitant]
     Active Substance: LEVOTHYROXINE

REACTIONS (5)
  - Respiratory arrest [None]
  - Pulse absent [None]
  - Blood glucose increased [None]
  - Nausea [None]
  - Vomiting [None]

NARRATIVE: CASE EVENT DATE: 20131111
